FAERS Safety Report 23794144 (Version 1)
Quarter: 2024Q2

REPORT INFORMATION
  Report Type: Spontaneous
  Country: US (occurrence: None)
  Receive Date: 20240426
  Receipt Date: 20240426
  Transmission Date: 20240716
  Serious: No
  Sender: FDA-Public Use
  Company Number: None

PATIENT
  Sex: Male
  Weight: 84.0 kg

DRUGS (2)
  1. OLANZAPINE [Suspect]
     Active Substance: OLANZAPINE
     Indication: Drug therapy
     Dosage: FREQUENCY : AT BEDTIME;?
     Route: 048
     Dates: start: 20220518, end: 20230515
  2. QUETIAPINE [Suspect]
     Active Substance: QUETIAPINE

REACTIONS (2)
  - Hyponatraemia [None]
  - Neuroleptic malignant syndrome [None]

NARRATIVE: CASE EVENT DATE: 20230421
